FAERS Safety Report 11362626 (Version 3)
Quarter: 2016Q1

REPORT INFORMATION
  Report Type: Report from Study
  Country: JP (occurrence: JP)
  Receive Date: 20150810
  Receipt Date: 20160314
  Transmission Date: 20160525
  Serious: Yes (Other)
  Sender: FDA-Public Use
  Company Number: JP-OTSUKA-2015_006923

PATIENT
  Age: 56 Year
  Sex: Male

DRUGS (15)
  1. TOLVAPTAN [Suspect]
     Active Substance: TOLVAPTAN
     Dosage: 45 MG, IN THE MORNING
     Route: 048
     Dates: start: 20150213
  2. TOLVAPTAN [Suspect]
     Active Substance: TOLVAPTAN
     Indication: CONGENITAL CYSTIC KIDNEY DISEASE
     Dosage: 60 MG, IN THE MORNING
     Route: 048
     Dates: start: 20140620
  3. TOLVAPTAN [Suspect]
     Active Substance: TOLVAPTAN
     Dosage: 30 MG, IN THE EVENING
     Route: 048
     Dates: start: 20150313
  4. TOLVAPTAN [Suspect]
     Active Substance: TOLVAPTAN
     Dosage: 15 MG, IN THE EVENING
     Route: 048
     Dates: start: 20150213
  5. TOLVAPTAN [Suspect]
     Active Substance: TOLVAPTAN
     Dosage: 30 MG, IN THE EVENING
     Route: 048
     Dates: start: 20140620
  6. TOLVAPTAN [Suspect]
     Active Substance: TOLVAPTAN
     Dosage: 90 MG, IN THE MORNING
     Route: 048
     Dates: start: 20150313
  7. DIOVAN [Concomitant]
     Active Substance: VALSARTAN
     Indication: HYPERTENSION
     Dosage: 40 MG, QD
     Route: 048
     Dates: start: 20140516
  8. MEIACT [Concomitant]
     Active Substance: CEFDITOREN PIVOXIL
     Indication: INFECTED CYST
     Dosage: 100 MG, TID
     Route: 048
     Dates: start: 20150516
  9. FEBURIC [Concomitant]
     Active Substance: FEBUXOSTAT
     Indication: HYPERURICAEMIA
     Dosage: 10 MG, QD
     Route: 048
     Dates: start: 20140516
  10. TOLVAPTAN [Suspect]
     Active Substance: TOLVAPTAN
     Dosage: 90 MG, IN THE MORNING
     Route: 048
     Dates: start: 20140815
  11. TOLVAPTAN [Suspect]
     Active Substance: TOLVAPTAN
     Dosage: 30 MG, IN THE EVENING
     Route: 048
     Dates: start: 20140815
  12. ESOMEPRAZOLE MAGNESIUM. [Concomitant]
     Active Substance: ESOMEPRAZOLE MAGNESIUM
     Indication: GASTROOESOPHAGEAL REFLUX DISEASE
     Dosage: 20 MG, QD
     Route: 048
     Dates: start: 20140516
  13. NORVASC [Concomitant]
     Active Substance: AMLODIPINE BESYLATE
     Indication: HYPERTENSION
     Dosage: 5 MG, QD
     Route: 048
     Dates: start: 20140516
  14. MEIACT [Concomitant]
     Active Substance: CEFDITOREN PIVOXIL
     Dosage: 100 MG, TID
     Route: 048
     Dates: start: 20141219
  15. FEBURIC [Concomitant]
     Active Substance: FEBUXOSTAT
     Indication: HYPERURICAEMIA
     Dosage: 10 MG, QD
     Route: 048
     Dates: start: 20150522

REACTIONS (4)
  - Lower limb fracture [Recovering/Resolving]
  - Hyperparathyroidism secondary [Not Recovered/Not Resolved]
  - Thirst [Not Recovered/Not Resolved]
  - Fall [Recovered/Resolved]

NARRATIVE: CASE EVENT DATE: 2014
